FAERS Safety Report 4933980-6 (Version None)
Quarter: 2006Q1

REPORT INFORMATION
  Report Type: 
  Country: None (occurrence: None)
  Receive Date: 20060303
  Receipt Date: 20060220
  Transmission Date: 20060701
  Serious: Yes (Other)
  Sender: FDA-Public Use
  Company Number: 2006026093

PATIENT
  Sex: Female

DRUGS (2)
  1. GENOTROPIN [Suspect]
     Dosage: 0.3 MG (0.3 MG, EVERYDAY); 0.3 MG (0.3 MG, DAILY)
     Dates: start: 20051024, end: 20060125
  2. GENOTROPIN [Suspect]
     Dosage: 0.3 MG (0.3 MG, EVERYDAY); 0.3 MG (0.3 MG, DAILY)
     Dates: start: 20060220

REACTIONS (1)
  - LIGAMENT INJURY [None]
